FAERS Safety Report 5231095-3 (Version None)
Quarter: 2007Q1

REPORT INFORMATION
  Report Type: 
  Country: None (occurrence: None)
  Receive Date: 20070206
  Receipt Date: 20070126
  Transmission Date: 20070707
  Serious: Yes (Other)
  Sender: FDA-Public Use
  Company Number: GB-GLAXOSMITHKLINE-B0454047A

PATIENT
  Age: 32 Year
  Sex: Male
  Weight: 94.1 kg

DRUGS (4)
  1. COMBIVIR [Suspect]
     Indication: HIV INFECTION
     Dosage: 1TAB TWICE PER DAY
     Route: 048
  2. FOSAMPRENAVIR [Suspect]
     Dosage: 700MG TWICE PER DAY
     Route: 048
     Dates: start: 20061114, end: 20061218
  3. RITONAVIR [Suspect]
     Dosage: 100MG TWICE PER DAY
     Route: 048
     Dates: start: 20061114, end: 20061218
  4. SUSTIVA [Concomitant]

REACTIONS (3)
  - DIZZINESS [None]
  - HEPATIC ENZYME INCREASED [None]
  - NIGHTMARE [None]
